FAERS Safety Report 7805663-6 (Version None)
Quarter: 2011Q4

REPORT INFORMATION
  Report Type: 
  Country: None (occurrence: None)
  Receive Date: 20111011
  Receipt Date: 20111007
  Transmission Date: 20120403
  Serious: Yes (Hospitalization)
  Sender: FDA-Public Use
  Company Number: IT-BRISTOL-MYERS SQUIBB COMPANY-16142952

PATIENT
  Age: 46 Year
  Sex: Male
  Weight: 77 kg

DRUGS (1)
  1. PACLITAXEL [Suspect]
     Indication: METASTATIC GASTRIC CANCER
     Dosage: INTERRUPTED ON 28SEP11. DAYS 1,8 AND 15. EVERY 4 WEEK CYCLE(28 DAYS). LAST DOSE:21SEP11
     Route: 042
     Dates: start: 20110817

REACTIONS (1)
  - CARDIAC FAILURE [None]
